FAERS Safety Report 22181261 (Version 1)
Quarter: 2023Q2

REPORT INFORMATION
  Report Type: Spontaneous
  Country: IT (occurrence: IT)
  Receive Date: 20230406
  Receipt Date: 20230406
  Transmission Date: 20230721
  Serious: Yes (Hospitalization)
  Sender: FDA-Public Use
  Company Number: IT-VERTEX PHARMACEUTICALS-2023-004834

PATIENT
  Age: 23 Year
  Sex: Female

DRUGS (3)
  1. ELEXACAFTOR\IVACAFTOR\TEZACAFTOR [Suspect]
     Active Substance: ELEXACAFTOR\IVACAFTOR\TEZACAFTOR
     Indication: Cystic fibrosis
     Dosage: UNKNOWN DOSAGE REGIMEN (OFF LABEL THERAPY)
     Route: 048
     Dates: start: 20220304
  2. OXYGEN [Concomitant]
     Active Substance: OXYGEN
     Indication: Hypercapnia
     Dosage: 3 L/MIN OF O2 IN STILLNESS
  3. OXYGEN [Concomitant]
     Active Substance: OXYGEN
     Dosage: REDUCED DOSE

REACTIONS (2)
  - Hospitalisation [Unknown]
  - Off label use [Unknown]

NARRATIVE: CASE EVENT DATE: 20220304
